FAERS Safety Report 17185907 (Version 2)
Quarter: 2019Q4

REPORT INFORMATION
  Report Type: Report from Study
  Country: CA (occurrence: CA)
  Receive Date: 20191220
  Receipt Date: 20191230
  Transmission Date: 20200122
  Serious: Yes (Hospitalization, Other)
  Sender: FDA-Public Use
  Company Number: CA-SA-2019SA349497

PATIENT
  Age: 68 Year
  Sex: Male

DRUGS (8)
  1. ABIRATERONE. [Suspect]
     Active Substance: ABIRATERONE ACETATE
     Indication: PROSTATECTOMY
     Dosage: 1000 MG, QD
     Route: 048
     Dates: start: 20190604, end: 20191121
  2. DALTEPARIN [Concomitant]
     Active Substance: DALTEPARIN
     Indication: THROMBOSIS PROPHYLAXIS
     Dosage: UNK
     Dates: start: 20191122
  3. TRAMADOL AND ACETAMINOPHEN [Concomitant]
     Active Substance: ACETAMINOPHEN\TRAMADOL HYDROCHLORIDE
     Indication: PAIN
     Dosage: UNK
     Dates: start: 20191123
  4. CABAZITAXEL [Suspect]
     Active Substance: CABAZITAXEL
     Dosage: 44 MG, Q3W
     Route: 042
     Dates: start: 20190917, end: 20190917
  5. ELIGARD [Suspect]
     Active Substance: LEUPROLIDE ACETATE
     Dosage: 22.5 MG, Q12W
     Route: 058
     Dates: start: 20190603, end: 20190820
  6. PREDNISONE. [Suspect]
     Active Substance: PREDNISONE
     Dosage: 5 MG, BID
     Route: 048
     Dates: start: 20190604, end: 20191121
  7. PREDNISONE. [Suspect]
     Active Substance: PREDNISONE
     Dosage: 5 MG, BID
     Route: 048
     Dates: start: 20191123, end: 20191129
  8. CABAZITAXEL [Suspect]
     Active Substance: CABAZITAXEL
     Indication: PROSTATECTOMY
     Dosage: 44 MG, Q3W
     Route: 042
     Dates: start: 20190618, end: 20190618

REACTIONS (1)
  - Abdominal distension [Recovered/Resolved]

NARRATIVE: CASE EVENT DATE: 20191201
